FAERS Safety Report 4506466-0 (Version None)
Quarter: 2004Q4

REPORT INFORMATION
  Report Type: 
  Country: None (occurrence: None)
  Receive Date: 20041122
  Receipt Date: 20041109
  Transmission Date: 20050328
  Serious: Yes (Hospitalization)
  Sender: FDA-Public Use
  Company Number: 200421183GDDC

PATIENT
  Age: 66 Year
  Sex: Male

DRUGS (3)
  1. DOCETAXEL [Suspect]
     Indication: NON-SMALL CELL LUNG CANCER
     Route: 042
     Dates: start: 20040907, end: 20040907
  2. VITAMIN B COMPLEX CAP [Concomitant]
     Dates: start: 20040703
  3. MEGESTROL ACETATE [Concomitant]
     Dates: start: 20040703

REACTIONS (5)
  - NEUTROPHIL COUNT ABNORMAL [None]
  - PNEUMONIA [None]
  - RESPIRATORY TRACT INFECTION [None]
  - TUBERCULOSIS [None]
  - WHITE BLOOD CELL COUNT INCREASED [None]
